FAERS Safety Report 6316345-4 (Version None)
Quarter: 2009Q3

REPORT INFORMATION
  Report Type: 
  Country: None (occurrence: None)
  Receive Date: 20090820
  Receipt Date: 20090526
  Transmission Date: 20100115
  Serious: Yes (Other)
  Sender: FDA-Public Use
  Company Number: A0802500A

PATIENT
  Age: 77 Year
  Sex: Male

DRUGS (4)
  1. MELPHALAN HYDROCHLORIDE [Suspect]
     Indication: MULTIPLE MYELOMA
     Dosage: 14MGD PER DAY
     Route: 048
     Dates: start: 20090504
  2. REVLIMID [Suspect]
     Indication: MULTIPLE MYELOMA
     Dosage: 10MGD PER DAY
     Route: 048
     Dates: start: 20090504
  3. PREDNISONE [Suspect]
     Indication: MULTIPLE MYELOMA
     Dosage: 140MGD PER DAY
     Route: 048
     Dates: start: 20090504
  4. ASPIRIN [Concomitant]

REACTIONS (1)
  - VISUAL ACUITY REDUCED [None]
